FAERS Safety Report 7400086-6 (Version None)
Quarter: 2011Q2

REPORT INFORMATION
  Report Type: 
  Country: None (occurrence: None)
  Receive Date: 20110407
  Receipt Date: 20091030
  Transmission Date: 20111010
  Serious: Yes (Other)
  Sender: FDA-Public Use
  Company Number: PHHY2009DE54643

PATIENT
  Sex: Female

DRUGS (1)
  1. EXTAVIA [Suspect]
     Indication: MULTIPLE SCLEROSIS
     Dosage: 1 ML, QOD
     Route: 058
     Dates: start: 20090814

REACTIONS (5)
  - CRANIAL NERVE DISORDER [None]
  - INJECTION SITE ABSCESS [None]
  - SPINAL DISORDER [None]
  - LIVER FUNCTION TEST ABNORMAL [None]
  - MALAISE [None]
